FAERS Safety Report 9196997 (Version 1)
Quarter: 2013Q1

REPORT INFORMATION
  Report Type: Spontaneous
  Country: US (occurrence: None)
  Receive Date: 20120709
  Receipt Date: 20120709
  Transmission Date: 20140127
  Serious: Yes (Other)
  Sender: FDA-Public Use
  Company Number: PHEH2012US001231

PATIENT
  Sex: Male

DRUGS (2)
  1. GLEEVEC [Suspect]
     Dates: start: 200603
  2. SPRYCEL [Suspect]
     Dates: start: 201104, end: 201112

REACTIONS (11)
  - Pneumonia [None]
  - Pleural effusion [None]
  - Upper respiratory tract infection [None]
  - Pulmonary oedema [None]
  - Erythema [None]
  - Rash [None]
  - Skin exfoliation [None]
  - No therapeutic response [None]
  - Fatigue [None]
  - Sinusitis [None]
  - Cough [None]
